FAERS Safety Report 19905682 (Version 1)
Quarter: 2021Q3

REPORT INFORMATION
  Report Type: Spontaneous
  Country: US (occurrence: US)
  Receive Date: 20210930
  Receipt Date: 20210930
  Transmission Date: 20211014
  Serious: No
  Sender: FDA-Public Use
  Company Number: None

PATIENT
  Sex: Female

DRUGS (1)
  1. EVEROLIMUS 2.5MG [Suspect]
     Active Substance: EVEROLIMUS
     Indication: CARCINOID TUMOUR
     Route: 048
     Dates: start: 20210903

REACTIONS (4)
  - Peripheral swelling [None]
  - Joint swelling [None]
  - Vulvovaginal swelling [None]
  - Therapy cessation [None]
